FAERS Safety Report 8861583 (Version 1)
Quarter: 2012Q4

REPORT INFORMATION
  Report Type: 
  Country: US (occurrence: US)
  Receive Date: 20121025
  Receipt Date: 20121025
  Transmission Date: 20130627
  Serious: No
  Sender: FDA-Public Use
  Company Number: US-AMGEN-USASP2012017552

PATIENT
  Age: 55 Year
  Sex: Female
  Weight: 56.69 kg

DRUGS (6)
  1. ENBREL [Suspect]
     Indication: PRODUCT USED FOR UNKNOWN INDICATION
     Dosage: 50 mg, 2 times/wk
  2. METHOTREXATE [Concomitant]
     Dosage: 2.5 mg, UNK
  3. FOLIC ACID [Concomitant]
  4. MULTIVITAMIN                       /00097801/ [Concomitant]
  5. CALTRATE WITH VITAMIN D [Concomitant]
  6. ZYRTEC [Concomitant]
     Dosage: 10 mg, UNK

REACTIONS (2)
  - Headache [Unknown]
  - Nausea [Unknown]
